FAERS Safety Report 5994899-5 (Version None)
Quarter: 2008Q4

REPORT INFORMATION
  Report Type: 
  Country: None (occurrence: None)
  Receive Date: 20081212
  Receipt Date: 20081208
  Transmission Date: 20090506
  Serious: Yes (Other)
  Sender: FDA-Public Use
  Company Number: US-JNJFOC-20081202578

PATIENT
  Sex: Female

DRUGS (1)
  1. DURAGESIC-100 [Suspect]
     Indication: DRUG USE FOR UNKNOWN INDICATION
     Route: 048

REACTIONS (6)
  - INTENTIONAL DRUG MISUSE [None]
  - LETHARGY [None]
  - REMOVAL OF FOREIGN BODY [None]
  - SOMNOLENCE [None]
  - SYNCOPE [None]
  - VOMITING [None]
